FAERS Safety Report 16864668 (Version 2)
Quarter: 2019Q4

REPORT INFORMATION
  Report Type: Report from Study
  Country: CA (occurrence: CA)
  Receive Date: 20190928
  Receipt Date: 20191115
  Transmission Date: 20200122
  Serious: Yes (Death)
  Sender: FDA-Public Use
  Company Number: CA-HLSUS-2019-CA-001143

PATIENT
  Age: 61 Year
  Sex: Male

DRUGS (4)
  1. QUETIAPINE) [Concomitant]
     Route: 048
     Dates: start: 2011
  2. SEROQUEL [Concomitant]
     Active Substance: QUETIAPINE FUMARATE
  3. CLOZARIL [Suspect]
     Active Substance: CLOZAPINE
     Indication: SCHIZOPHRENIA
     Dosage: 200 MG BID
     Route: 048
     Dates: start: 20141016
  4. COLACE [Concomitant]
     Active Substance: DOCUSATE SODIUM
     Indication: CONSTIPATION
     Route: 048

REACTIONS (1)
  - Cardiovascular disorder [Fatal]

NARRATIVE: CASE EVENT DATE: 201909
